FAERS Safety Report 7278160-7 (Version None)
Quarter: 2011Q1

REPORT INFORMATION
  Report Type: 
  Country: None (occurrence: None)
  Receive Date: 20110207
  Receipt Date: 20110201
  Transmission Date: 20110831
  Serious: Yes (Other)
  Sender: FDA-Public Use
  Company Number: A0911161A

PATIENT
  Age: 52 Year
  Sex: Female

DRUGS (6)
  1. ZANTAC [Concomitant]
  2. ADVAIR [Suspect]
     Indication: ASTHMA
     Dosage: 1PUFF TWICE PER DAY
     Route: 055
     Dates: end: 20110131
  3. LISINOPRIL [Concomitant]
  4. ALBUTEROL [Concomitant]
  5. CIMETIDINE [Concomitant]
  6. COMBIVENT [Concomitant]

REACTIONS (6)
  - HAND FRACTURE [None]
  - MYALGIA [None]
  - OSTEOGENESIS IMPERFECTA [None]
  - BONE PAIN [None]
  - PAIN [None]
  - DRUG ADMINISTRATION ERROR [None]
